FAERS Safety Report 10671165 (Version 2)
Quarter: 2021Q4

REPORT INFORMATION
  Report Type: Report from Study
  Country: US (occurrence: US)
  Receive Date: 20141223
  Receipt Date: 20211028
  Transmission Date: 20220303
  Serious: No
  Sender: FDA-Public Use
  Company Number: US-VERTEX PHARMACEUTICALS-2014-004889

PATIENT
  Age: 7 Year
  Sex: Female

DRUGS (3)
  1. KALYDECO [Suspect]
     Active Substance: IVACAFTOR
     Indication: Cystic fibrosis
     Dosage: UNK, QD
     Route: 048
     Dates: start: 20130206
  2. KALYDECO [Suspect]
     Active Substance: IVACAFTOR
     Dosage: 150 MG BID
     Route: 048
     Dates: start: 201306
  3. KALYDECO [Suspect]
     Active Substance: IVACAFTOR
     Dosage: 150 MG QD
     Route: 048

REACTIONS (3)
  - Alanine aminotransferase increased [Recovered/Resolved]
  - Aspartate aminotransferase increased [Recovered/Resolved]
  - Nasopharyngitis [Unknown]

NARRATIVE: CASE EVENT DATE: 20140103
